FAERS Safety Report 21211527 (Version 12)
Quarter: 2022Q4

REPORT INFORMATION
  Report Type: Report from Study
  Country: US (occurrence: US)
  Receive Date: 20220815
  Receipt Date: 20221214
  Transmission Date: 20230113
  Serious: Yes (Hospitalization)
  Sender: FDA-Public Use
  Company Number: US-GLAXOSMITHKLINE-US2022GSK116656

PATIENT

DRUGS (17)
  1. BELANTAMAB MAFODOTIN [Suspect]
     Active Substance: BELANTAMAB MAFODOTIN
     Indication: Plasma cell myeloma
     Dosage: 2.5 MG/KG, (176 MG) CYC (DAY 1 OF 28 DAY CYCLE)
     Route: 042
     Dates: start: 20211220, end: 20211220
  2. BELANTAMAB MAFODOTIN [Suspect]
     Active Substance: BELANTAMAB MAFODOTIN
     Dosage: 1.9 MG/KG, CYC (133 MG, DAY 1 OF 28 DAY CYCLE)
     Route: 042
     Dates: start: 20220117, end: 20220117
  3. BELANTAMAB MAFODOTIN [Suspect]
     Active Substance: BELANTAMAB MAFODOTIN
     Dosage: 1.9 MG/KG, CYC (DAY 1 OF 28 DAY CYCLE)
     Route: 042
     Dates: start: 20220706, end: 20220706
  4. BELANTAMAB MAFODOTIN [Suspect]
     Active Substance: BELANTAMAB MAFODOTIN
     Dosage: 134 MG, CYC
     Route: 042
     Dates: start: 20220801
  5. POMALIDOMIDE [Suspect]
     Active Substance: POMALIDOMIDE
     Indication: Plasma cell myeloma
     Dosage: 4 MG, (DAYS 1-21 OF 28 DAY CYCLE)
     Route: 048
     Dates: start: 20211220, end: 20220109
  6. POMALIDOMIDE [Suspect]
     Active Substance: POMALIDOMIDE
     Dosage: 4 MG, (DAYS 1-21 OF 28 DAY CYCLE)
     Route: 048
     Dates: start: 20220117
  7. POMALIDOMIDE [Suspect]
     Active Substance: POMALIDOMIDE
     Dosage: 4 MG, CYC (DAYS 1-21 OF 28 DAY CYCLE)
     Route: 048
     Dates: start: 20220706, end: 20220724
  8. POMALIDOMIDE [Suspect]
     Active Substance: POMALIDOMIDE
     Dosage: 4 MG, CYC (DAYS 1-21 OF 28 DAY CYCLE)
     Route: 048
     Dates: start: 20220801, end: 20220807
  9. DEXAMETHASONE [Suspect]
     Active Substance: DEXAMETHASONE
     Indication: Plasma cell myeloma
     Dosage: 20 MG, CYC (DAYS 1,8,15 AND 22 OF 28 DAY CYCLE)
     Route: 048
     Dates: start: 20211220, end: 20220110
  10. DEXAMETHASONE [Suspect]
     Active Substance: DEXAMETHASONE
     Dosage: 20 MG, CYC (DAYS 1,8,15 AND 22 OF 28 DAY CYCLE)
     Route: 048
     Dates: start: 20220117, end: 20220207
  11. DEXAMETHASONE [Suspect]
     Active Substance: DEXAMETHASONE
     Dosage: 20 MG, CYC (DAYS 1,8,15 AND 22 OF 28 DAY CYCLE)
     Route: 048
     Dates: start: 20220704, end: 20220711
  12. DEXAMETHASONE [Suspect]
     Active Substance: DEXAMETHASONE
     Dosage: 20 MG, CYC  (DAY 22 )
     Route: 048
     Dates: start: 20220725
  13. DEXAMETHASONE [Suspect]
     Active Substance: DEXAMETHASONE
     Dosage: 20 MG, CYC (DAY 1, 8, 15, 22 )
     Route: 048
     Dates: start: 20220801
  14. ASPIRIN [Concomitant]
     Active Substance: ASPIRIN
     Indication: Prophylaxis
     Dosage: 81 MG, QD
     Route: 048
     Dates: start: 19900101
  15. ZOMETA [Concomitant]
     Active Substance: ZOLEDRONIC ACID
     Indication: Plasma cell myeloma
     Dosage: 4 MG, QM
     Route: 048
     Dates: start: 20160517
  16. CALCIUM 500 PLUS D [Concomitant]
     Indication: Prophylaxis
     Dosage: 1 DF, QD
     Route: 048
     Dates: start: 20160517
  17. OMEPRAZOLE [Concomitant]
     Active Substance: OMEPRAZOLE
     Indication: Gastrooesophageal reflux disease
     Dosage: 10 MG, QD
     Route: 048
     Dates: start: 20190101

REACTIONS (3)
  - Acute respiratory failure [Recovered/Resolved]
  - Hepatic cirrhosis [Recovering/Resolving]
  - Ascites [Recovered/Resolved]

NARRATIVE: CASE EVENT DATE: 20220806
